FAERS Safety Report 16653443 (Version 2)
Quarter: 2019Q4

REPORT INFORMATION
  Report Type: Spontaneous
  Country: IT (occurrence: IT)
  Receive Date: 20190731
  Receipt Date: 20191108
  Transmission Date: 20200122
  Serious: Yes (Hospitalization)
  Sender: FDA-Public Use
  Company Number: IT-TEVA-2019-IT-1085950

PATIENT
  Age: 97 Year
  Sex: Female

DRUGS (9)
  1. INCRUSE ELLIPTA [Concomitant]
     Active Substance: UMECLIDINIUM BROMIDE
  2. BISOPROLOL FUMARATE. [Suspect]
     Active Substance: BISOPROLOL FUMARATE
     Dosage: 2 DF
     Dates: start: 20190101, end: 20190621
  3. TRAMADOL. [Interacting]
     Active Substance: TRAMADOL
     Route: 048
     Dates: start: 20190611, end: 20190621
  4. CARDIOASPIRIN [Concomitant]
     Active Substance: ASPIRIN
  5. RELVAR ELLIPTA [Concomitant]
     Active Substance: FLUTICASONE FUROATE\VILANTEROL TRIFENATATE
  6. RANITIDINE. [Concomitant]
     Active Substance: RANITIDINE
  7. LANOXIN [Interacting]
     Active Substance: DIGOXIN
     Dosage: 1 DF
     Dates: start: 20190101, end: 20190621
  8. LASIX [Concomitant]
     Active Substance: FUROSEMIDE
  9. PARACETAMOL [Concomitant]
     Active Substance: ACETAMINOPHEN
     Route: 048

REACTIONS (4)
  - Bradycardia [Unknown]
  - Drug interaction [Unknown]
  - Cardiac failure [Unknown]
  - Chest pain [Unknown]

NARRATIVE: CASE EVENT DATE: 20190621
